FAERS Safety Report 5364499-9 (Version None)
Quarter: 2007Q2

REPORT INFORMATION
  Report Type: 
  Country: None (occurrence: None)
  Receive Date: 20070530
  Receipt Date: 20070116
  Transmission Date: 20071010
  Serious: No
  Sender: FDA-Public Use
  Company Number: 2007PV028542

PATIENT
  Age: 34 Year
  Sex: Female
  Weight: 113.3993 kg

DRUGS (3)
  1. BYETTA [Suspect]
     Indication: DRUG USE FOR UNKNOWN INDICATION
     Dosage: 5 MCG;BID;SC
     Route: 058
     Dates: start: 20070107
  2. GLIPIZIDE [Concomitant]
  3. METFORMIN HCL [Concomitant]

REACTIONS (2)
  - INJECTION SITE URTICARIA [None]
  - THIRST DECREASED [None]
